FAERS Safety Report 22627191 (Version 1)
Quarter: 2023Q2

REPORT INFORMATION
  Report Type: Spontaneous
  Country: NO (occurrence: NO)
  Receive Date: 20230622
  Receipt Date: 20230622
  Transmission Date: 20230721
  Serious: Yes (Life-Threatening, Hospitalization, Other)
  Sender: FDA-Public Use
  Company Number: None

PATIENT

DRUGS (1)
  1. DICLOFENAC [Suspect]
     Active Substance: DICLOFENAC
     Indication: Inflammation
     Dosage: UNK, (M01AB05 - DICLOFENAC)
     Route: 048
     Dates: start: 2000, end: 2022

REACTIONS (7)
  - Anaphylactic reaction [Not Recovered/Not Resolved]
  - Syncope [Unknown]
  - Pruritus [Unknown]
  - Paraesthesia [Unknown]
  - Hyperhidrosis [Unknown]
  - Dizziness [Unknown]
  - Dysarthria [Unknown]

NARRATIVE: CASE EVENT DATE: 20220101
